FAERS Safety Report 14270429 (Version 1)
Quarter: 2017Q4

REPORT INFORMATION
  Report Type: Spontaneous
  Country: US (occurrence: US)
  Receive Date: 20171211
  Receipt Date: 20171211
  Transmission Date: 20180321
  Serious: Yes (Hospitalization)
  Sender: FDA-Public Use
  Company Number: US-DSJP-DSU-2017-137699

PATIENT

DRUGS (2)
  1. BENICAR [Suspect]
     Active Substance: OLMESARTAN MEDOXOMIL
     Indication: HYPERTENSION
     Dosage: 40 MG, QD
     Route: 048
     Dates: start: 20060101, end: 20120218
  2. BENICAR HCT [Suspect]
     Active Substance: HYDROCHLOROTHIAZIDE\OLMESARTAN MEDOXOMIL
     Indication: HYPERTENSION
     Dosage: 40/12.5MG, QD
     Route: 048
     Dates: start: 20060101, end: 20120218

REACTIONS (8)
  - Diverticulum [Not Recovered/Not Resolved]
  - Pancreatitis [Unknown]
  - Sprue-like enteropathy [Unknown]
  - Diverticulitis [Not Recovered/Not Resolved]
  - Wound infection bacterial [Recovered/Resolved]
  - Large intestinal haemorrhage [Recovered/Resolved]
  - Haematocrit decreased [Recovered/Resolved]
  - Hypotension [Recovered/Resolved]

NARRATIVE: CASE EVENT DATE: 201004
